FAERS Safety Report 24003784 (Version 1)
Quarter: 2024Q2

REPORT INFORMATION
  Report Type: Spontaneous
  Country: US (occurrence: US)
  Receive Date: 20240624
  Receipt Date: 20240624
  Transmission Date: 20240716
  Serious: Yes (Life-Threatening, Hospitalization, Other)
  Sender: FDA-Public Use
  Company Number: US-009507513-2406USA006999

PATIENT
  Age: 60 Year
  Sex: Male

DRUGS (2)
  1. CUBICIN [Suspect]
     Active Substance: DAPTOMYCIN
     Indication: Osteomyelitis
     Dosage: 850 MILLIGRAM, EVERY 48 HOURS FOR 20 DAYS, A TOTAL OF 11 DOSES
  2. CUBICIN [Suspect]
     Active Substance: DAPTOMYCIN
     Indication: Enterococcal infection

REACTIONS (2)
  - Eosinophilic pneumonia [Recovering/Resolving]
  - Product use in unapproved indication [Unknown]
